FAERS Safety Report 9746394 (Version 3)
Quarter: 2014Q3

REPORT INFORMATION
  Report Type: Spontaneous
  Country: US (occurrence: US)
  Receive Date: 20131211
  Receipt Date: 20140806
  Transmission Date: 20150326
  Serious: Yes (Hospitalization)
  Sender: FDA-Public Use
  Company Number: US-GLAXOSMITHKLINE-A1053097A

PATIENT
  Age: 72 Year
  Sex: Female
  Weight: 97.4 kg

DRUGS (1)
  1. MELPHALAN [Suspect]
     Active Substance: MELPHALAN
     Indication: PLASMA CELL MYELOMA
     Dosage: 192MG SINGLE DOSE
     Route: 042
     Dates: start: 20130915, end: 20130916

REACTIONS (6)
  - Device related infection [Unknown]
  - Dyspnoea [Recovered/Resolved]
  - Myopathy [Recovered/Resolved]
  - Procedural complication [Recovered/Resolved]
  - Wound [Recovered/Resolved]
  - Pulmonary hypertension [Unknown]

NARRATIVE: CASE EVENT DATE: 20130915
